FAERS Safety Report 9264753 (Version 1)
Quarter: 2013Q2

REPORT INFORMATION
  Report Type: Spontaneous
  Country: US (occurrence: None)
  Receive Date: 20130429
  Receipt Date: 20130429
  Transmission Date: 20140414
  Serious: Yes (Life-Threatening)
  Sender: FDA-Public Use
  Company Number: None

PATIENT
  Age: 54 None
  Sex: Male

DRUGS (2)
  1. TRAZODONE [Suspect]
     Indication: POST-TRAUMATIC STRESS DISORDER
     Dosage: 1 TAB
     Route: 048
     Dates: start: 20071116, end: 20121011
  2. TRAZODONE [Suspect]
     Indication: INSOMNIA
     Dosage: 1 TAB
     Route: 048
     Dates: start: 20071116, end: 20121011

REACTIONS (2)
  - Suicide attempt [None]
  - Nightmare [None]
